FAERS Safety Report 20661507 (Version 3)
Quarter: 2025Q3

REPORT INFORMATION
  Report Type: Report from Study
  Country: EU (occurrence: EU)
  Receive Date: 20220401
  Receipt Date: 20250804
  Transmission Date: 20251021
  Serious: Yes (Death)
  Sender: ABBVIE
  Company Number: EU-ABBVIE-19K-056-2964541-00

PATIENT
  Age: 78 Year
  Sex: Male
  Weight: 64 kg

DRUGS (8)
  1. VENETOCLAX [Suspect]
     Active Substance: VENETOCLAX
     Indication: Chronic lymphocytic leukaemia
     Route: 048
     Dates: start: 20190723, end: 20190729
  2. VENETOCLAX [Suspect]
     Active Substance: VENETOCLAX
     Indication: Chronic lymphocytic leukaemia
     Route: 048
     Dates: start: 20190730, end: 20190805
  3. VENETOCLAX [Suspect]
     Active Substance: VENETOCLAX
     Indication: Chronic lymphocytic leukaemia
     Route: 048
     Dates: start: 20190806, end: 20190812
  4. VENETOCLAX [Suspect]
     Active Substance: VENETOCLAX
     Indication: Chronic lymphocytic leukaemia
     Route: 048
     Dates: start: 20190813, end: 20190819
  5. VENETOCLAX [Suspect]
     Active Substance: VENETOCLAX
     Indication: Chronic lymphocytic leukaemia
     Route: 048
     Dates: start: 20190820, end: 202102
  6. SMECTA [Concomitant]
     Active Substance: MONTMORILLONITE
     Indication: Gastroenteritis
     Dates: start: 20200102
  7. FUROSEMIDE [Concomitant]
     Active Substance: FUROSEMIDE
     Indication: Prophylaxis
     Dates: start: 20190719, end: 20190726
  8. VALACYCLOVIR HYDROCHLORIDE [Concomitant]
     Active Substance: VALACYCLOVIR HYDROCHLORIDE
     Indication: Infection prophylaxis
     Dates: start: 20190715

REACTIONS (13)
  - Death [Fatal]
  - Pneumonia [Unknown]
  - Gastroenteritis [Not Recovered/Not Resolved]
  - Iron deficiency [Recovered/Resolved]
  - Folate deficiency [Recovered/Resolved]
  - Weight decreased [Unknown]
  - Hyperuricaemia [Recovered/Resolved]
  - Night sweats [Unknown]
  - Hypocalcaemia [Not Recovered/Not Resolved]
  - Neutropenia [Recovered/Resolved]
  - Diarrhoea [Recovered/Resolved]
  - Vocal cord disorder [Unknown]
  - Bronchitis [Unknown]

NARRATIVE: CASE EVENT DATE: 20190725
